FAERS Safety Report 8888333 (Version 2)
Quarter: 2012Q4

REPORT INFORMATION
  Report Type: 
  Country: US (occurrence: US)
  Receive Date: 20121106
  Receipt Date: 20121221
  Transmission Date: 20130627
  Serious: No
  Sender: FDA-Public Use
  Company Number: US-PFIZER INC-2012276175

PATIENT

DRUGS (3)
  1. NICOTINE [Suspect]
     Dosage: UNK
  2. NICOTINE PATCH [Suspect]
     Dosage: UNK
  3. NICOTINE [Suspect]
     Dosage: UNK

REACTIONS (1)
  - Drug ineffective [Unknown]
